FAERS Safety Report 7156332-X (Version None)
Quarter: 2010Q4

REPORT INFORMATION
  Report Type: 
  Country: None (occurrence: None)
  Receive Date: 20101214
  Receipt Date: 20101201
  Transmission Date: 20110411
  Serious: No
  Sender: FDA-Public Use
  Company Number: US-ASTRAZENECA-2010SE56907

PATIENT
  Age: 48 Year
  Sex: Male
  Weight: 81.6 kg

DRUGS (5)
  1. SEROQUEL XR [Suspect]
     Indication: ANXIETY
     Route: 048
     Dates: start: 20100805
  2. SEROQUEL XR [Suspect]
     Indication: INSOMNIA
     Route: 048
     Dates: start: 20100805
  3. SEROQUEL XR [Suspect]
     Route: 048
     Dates: start: 20101105
  4. SEROQUEL XR [Suspect]
     Route: 048
     Dates: start: 20101105
  5. ACTOS [Concomitant]

REACTIONS (1)
  - NEUTROPENIA [None]
